FAERS Safety Report 8082126-7 (Version None)
Quarter: 2012Q1

REPORT INFORMATION
  Report Type: 
  Country: None (occurrence: None)
  Receive Date: 20120127
  Receipt Date: 20110210
  Transmission Date: 20120608
  Serious: No
  Sender: FDA-Public Use
  Company Number: US-ABBOTT-11P-163-0704117-00

PATIENT
  Age: 64 Year
  Sex: Female

DRUGS (5)
  1. PROZAC [Concomitant]
     Indication: ANXIETY
  2. PREDNISONE TAB [Concomitant]
     Indication: RHEUMATOID ARTHRITIS
     Dosage: 2.5MG DAILY
  3. PERCOCET [Concomitant]
     Indication: ARTHRALGIA
     Dosage: 1-2 TABS EVERY 8 HOURS PRN
  4. HUMIRA [Suspect]
     Indication: RHEUMATOID ARTHRITIS
     Dates: start: 20110210
  5. PROZAC [Concomitant]
     Indication: DEPRESSION
     Dosage: 40MG DAILY

REACTIONS (2)
  - INJECTION SITE PAIN [None]
  - RHEUMATOID ARTHRITIS [None]
